FAERS Safety Report 13743531 (Version 9)
Quarter: 2018Q4

REPORT INFORMATION
  Report Type: Spontaneous
  Country: US (occurrence: US)
  Receive Date: 20170711
  Receipt Date: 20181120
  Transmission Date: 20190204
  Serious: Yes (Hospitalization)
  Sender: FDA-Public Use
  Company Number: US-ACTELION-A-NJ2017-156445

PATIENT
  Age: 48 Year
  Sex: Female
  Weight: 116.7 kg

DRUGS (15)
  1. VELETRI [Suspect]
     Active Substance: EPOPROSTENOL
     Dosage: UNK
     Route: 042
  2. ELIQUIS [Concomitant]
     Active Substance: APIXABAN
  3. SILDENAFIL. [Concomitant]
     Active Substance: SILDENAFIL
     Dosage: UNK
  4. SYNTHROID [Concomitant]
     Active Substance: LEVOTHYROXINE SODIUM
     Dosage: UNK
  5. AMIODARONE [Concomitant]
     Active Substance: AMIODARONE
  6. IRON [Concomitant]
     Active Substance: IRON
     Dosage: UNK
  7. DEMADEX [Concomitant]
     Active Substance: TORSEMIDE
  8. VELETRI [Suspect]
     Active Substance: EPOPROSTENOL
     Indication: PULMONARY ARTERIAL HYPERTENSION
     Dosage: 56 NG/KG, PER MIN
     Route: 042
     Dates: start: 2013
  9. COUMADIN [Concomitant]
     Active Substance: WARFARIN SODIUM
  10. GLIPIZIDE. [Concomitant]
     Active Substance: GLIPIZIDE
     Dosage: UNK
  11. METFORMIN [Concomitant]
     Active Substance: METFORMIN HYDROCHLORIDE
     Dosage: UNK
  12. LISINOPRIL. [Suspect]
     Active Substance: LISINOPRIL
     Indication: ACCIDENTAL EXPOSURE TO PRODUCT
     Route: 048
  13. TORSEMIDE. [Concomitant]
     Active Substance: TORSEMIDE
  14. POTASSIUM [Concomitant]
     Active Substance: POTASSIUM
  15. LEVOTHYROXINE. [Concomitant]
     Active Substance: LEVOTHYROXINE

REACTIONS (24)
  - Peripheral swelling [Recovering/Resolving]
  - Osteoarthritis [Unknown]
  - Back pain [Unknown]
  - Blood urea increased [Unknown]
  - Dizziness [Recovered/Resolved]
  - Blood creatinine increased [Unknown]
  - Hypophagia [Recovering/Resolving]
  - Urinary tract infection [Recovered/Resolved]
  - Blood potassium decreased [Recovering/Resolving]
  - Decreased activity [Unknown]
  - Unevaluable event [Unknown]
  - Gastrointestinal disorder [Recovering/Resolving]
  - Dyspnoea exertional [Unknown]
  - Accidental exposure to product [Unknown]
  - Pain [Recovered/Resolved]
  - Atrial flutter [Recovered/Resolved]
  - Cellulitis [Recovered/Resolved]
  - Acute kidney injury [Recovering/Resolving]
  - Weight fluctuation [Unknown]
  - Pulmonary hypertension [Recovered/Resolved]
  - Dyspnoea [Recovered/Resolved]
  - Oedema [Recovered/Resolved]
  - Intervertebral disc degeneration [Unknown]
  - Mineral supplementation [Recovering/Resolving]

NARRATIVE: CASE EVENT DATE: 20181027
